FAERS Safety Report 5015141-8 (Version None)
Quarter: 2006Q2

REPORT INFORMATION
  Report Type: 
  Country: None (occurrence: None)
  Receive Date: 20060530
  Receipt Date: 20060519
  Transmission Date: 20061013
  Serious: No
  Sender: FDA-Public Use
  Company Number: 2006-05-0770

PATIENT
  Sex: Female
  Weight: 59 kg

DRUGS (3)
  1. CELESTONE [Suspect]
     Indication: PYREXIA
     Dosage: 2 MG TID; SEE IMAGE
     Dates: start: 20060509
  2. CELESTONE [Suspect]
     Indication: PYREXIA
     Dosage: 2 MG TID; SEE IMAGE
     Dates: start: 20060509
  3. AMOXICILLIN [Concomitant]

REACTIONS (2)
  - PYREXIA [None]
  - RASH GENERALISED [None]
